FAERS Safety Report 8267516-1 (Version None)
Quarter: 2012Q2

REPORT INFORMATION
  Report Type: 
  Country: None (occurrence: None)
  Receive Date: 20120409
  Receipt Date: 20120330
  Transmission Date: 20120825
  Serious: Yes (Other)
  Sender: FDA-Public Use
  Company Number: US-JNJFOC-20120104182

PATIENT
  Sex: Male
  Weight: 88.45 kg

DRUGS (2)
  1. REMICADE [Suspect]
     Indication: CROHN'S DISEASE
     Route: 042
     Dates: start: 20080101
  2. NASONEX [Concomitant]
     Indication: SEASONAL ALLERGY
     Route: 045

REACTIONS (2)
  - ASTHMA [None]
  - MEMORY IMPAIRMENT [None]
